FAERS Safety Report 16025349 (Version 6)
Quarter: 2022Q1

REPORT INFORMATION
  Report Type: Spontaneous
  Country: US (occurrence: None)
  Receive Date: 20190301
  Receipt Date: 20220322
  Transmission Date: 20220424
  Serious: Yes (Other)
  Sender: FDA-Public Use
  Company Number: 2018SF64789

PATIENT
  Age: 56 Year
  Sex: Male
  Weight: 90.3 kg

DRUGS (34)
  1. PRILOSEC [Suspect]
     Active Substance: OMEPRAZOLE MAGNESIUM
     Indication: Dyspepsia
     Route: 048
     Dates: start: 20080101, end: 20080919
  2. PRILOSEC [Suspect]
     Active Substance: OMEPRAZOLE MAGNESIUM
     Indication: Dyspepsia
     Dosage: OMEPRAZOLE
     Route: 065
     Dates: start: 2006
  3. PRILOSEC [Suspect]
     Active Substance: OMEPRAZOLE MAGNESIUM
     Indication: Dyspepsia
     Dosage: GENERIC
     Route: 065
     Dates: start: 20180625
  4. NEXIUM [Suspect]
     Active Substance: ESOMEPRAZOLE MAGNESIUM
     Indication: Dyspepsia
     Route: 048
     Dates: start: 20080101, end: 20080919
  5. NEXIUM [Suspect]
     Active Substance: ESOMEPRAZOLE MAGNESIUM
     Indication: Dyspepsia
     Route: 048
     Dates: start: 2001, end: 2010
  6. NEXIUM 24HR [Suspect]
     Active Substance: ESOMEPRAZOLE MAGNESIUM
     Route: 048
     Dates: start: 20080101, end: 20080919
  7. PRILOSEC OTC [Suspect]
     Active Substance: OMEPRAZOLE MAGNESIUM
     Indication: Gastrooesophageal reflux disease
     Route: 048
     Dates: start: 20080101, end: 20080919
  8. PREVACID [Suspect]
     Active Substance: LANSOPRAZOLE
     Indication: Dyspepsia
     Route: 065
  9. PREVACID [Suspect]
     Active Substance: LANSOPRAZOLE
     Indication: Dyspepsia
     Route: 065
     Dates: start: 2010, end: 2015
  10. PREVACID [Suspect]
     Active Substance: LANSOPRAZOLE
     Indication: Dyspepsia
     Dosage: LANSOPRAZOLE
     Route: 065
  11. PREVACID 24 HR [Suspect]
     Active Substance: LANSOPRAZOLE
     Route: 065
  12. PROTONIX [Suspect]
     Active Substance: PANTOPRAZOLE SODIUM
     Route: 065
  13. PROTONIX [Suspect]
     Active Substance: PANTOPRAZOLE SODIUM
     Dosage: GENERIC
     Route: 065
  14. ZEGERID [Suspect]
     Active Substance: OMEPRAZOLE\SODIUM BICARBONATE
     Indication: Gastrooesophageal reflux disease
     Route: 065
     Dates: start: 2006, end: 2009
  15. CITALOPRAM [Concomitant]
     Active Substance: CITALOPRAM HYDROBROMIDE
  16. LISINOPRIL [Concomitant]
     Active Substance: LISINOPRIL
     Indication: Hypertension
     Dates: start: 201710, end: 201809
  17. FLUOXETINE [Concomitant]
     Active Substance: FLUOXETINE HYDROCHLORIDE
     Indication: Depression
     Dates: start: 201710
  18. LEVOFLOXACIN [Concomitant]
     Active Substance: LEVOFLOXACIN
     Indication: Infection
     Dates: start: 201801, end: 201807
  19. IBUPROFEN [Concomitant]
     Active Substance: IBUPROFEN
     Indication: Pain
     Dosage: TAKEN WHEN NEEDED
  20. ALEVE [Concomitant]
     Active Substance: NAPROXEN SODIUM
     Indication: Pain
     Dosage: TAKEN WHEN NEEDED
  21. ASPIRIN [Concomitant]
     Active Substance: ASPIRIN
     Indication: Pain
     Dosage: TAKEN WHEN NEEDED
  22. PEPCID AC [Concomitant]
     Active Substance: FAMOTIDINE
     Dosage: OTC
     Dates: start: 2001, end: 2009
  23. ZANTAC [Concomitant]
     Active Substance: RANITIDINE HYDROCHLORIDE
     Dosage: OTC
     Dates: start: 2001, end: 2012
  24. TOVIAZ [Concomitant]
     Active Substance: FESOTERODINE FUMARATE
  25. BUPROPION [Concomitant]
     Active Substance: BUPROPION
  26. PEPTO-BISMOL [Concomitant]
     Active Substance: BISMUTH SUBSALICYLATE
     Dosage: OTC
     Dates: start: 2001, end: 2009
  27. KETOCONAZOLE [Concomitant]
     Active Substance: KETOCONAZOLE
  28. FINASTERIDE [Concomitant]
     Active Substance: FINASTERIDE
  29. TRIAMCINOLONE [Concomitant]
     Active Substance: TRIAMCINOLONE
  30. FLOVENT [Concomitant]
     Active Substance: FLUTICASONE PROPIONATE
  31. ADVAIR HFA [Concomitant]
     Active Substance: FLUTICASONE PROPIONATE\SALMETEROL XINAFOATE
  32. TAMSULOSIN [Concomitant]
     Active Substance: TAMSULOSIN
  33. PREDNISONE [Concomitant]
     Active Substance: PREDNISONE
  34. PREDNISONE [Concomitant]
     Active Substance: PREDNISONE

REACTIONS (6)
  - Chronic kidney disease [Not Recovered/Not Resolved]
  - Renal failure [Unknown]
  - Renal injury [Unknown]
  - Anxiety [Unknown]
  - Depression [Unknown]
  - Gastrooesophageal reflux disease [Not Recovered/Not Resolved]

NARRATIVE: CASE EVENT DATE: 20170101
